FAERS Safety Report 5781710-0 (Version None)
Quarter: 2008Q2

REPORT INFORMATION
  Report Type: 
  Country: None (occurrence: None)
  Receive Date: 20080623
  Receipt Date: 20070521
  Transmission Date: 20081010
  Serious: No
  Sender: FDA-Public Use
  Company Number: US-ASTRAZENECA-2007UW12551

PATIENT
  Age: 58 Year
  Sex: Male
  Weight: 74.8 kg

DRUGS (2)
  1. RHINOCORT [Suspect]
     Indication: SEASONAL ALLERGY
     Dosage: 1 SPRAY/NOSTRIL
     Route: 045
  2. ENTEX SOLUTION [Concomitant]

REACTIONS (2)
  - FLIGHT OF IDEAS [None]
  - INITIAL INSOMNIA [None]
